FAERS Safety Report 21951147 (Version 1)
Quarter: 2023Q1

REPORT INFORMATION
  Report Type: Other
  Country: US (occurrence: US)
  Receive Date: 20230203
  Receipt Date: 20230203
  Transmission Date: 20230418
  Serious: Yes (Hospitalization)
  Sender: FDA-Public Use
  Company Number: US-C B Fleet Co Inc-202301-US-000174

PATIENT
  Age: 64 Year
  Sex: Female

DRUGS (1)
  1. HYDROCORTISONE [Suspect]
     Active Substance: HYDROCORTISONE
     Indication: Primary adrenal insufficiency
     Dosage: 2 SQUIRTS TWICE DAILY OVER THE PAST MONTH, 3 TUBES TOTAL
     Route: 048

REACTIONS (6)
  - Hypertension [Recovering/Resolving]
  - Hypokalaemia [Recovering/Resolving]
  - Incorrect route of product administration [None]
  - Product use in unapproved indication [None]
  - Rhabdomyolysis [Unknown]
  - Drug abuse [None]
